FAERS Safety Report 7691329-2 (Version None)
Quarter: 2011Q3

REPORT INFORMATION
  Report Type: 
  Country: None (occurrence: None)
  Receive Date: 20110818
  Receipt Date: 20110809
  Transmission Date: 20111222
  Serious: Yes (Hospitalization)
  Sender: FDA-Public Use
  Company Number: US-NOVOPROD-333429

PATIENT
  Sex: Female
  Weight: 60.771 kg

DRUGS (1)
  1. LEVEMIR [Suspect]
     Indication: TYPE 2 DIABETES MELLITUS
     Dosage: 20 U, AM AND 7U, PM
     Route: 058
     Dates: end: 20110711

REACTIONS (1)
  - CEREBROVASCULAR ACCIDENT [None]
